FAERS Safety Report 8055929-2 (Version None)
Quarter: 2012Q1

REPORT INFORMATION
  Report Type: 
  Country: None (occurrence: None)
  Receive Date: 20120119
  Receipt Date: 20120109
  Transmission Date: 20120608
  Serious: Yes (Hospitalization)
  Sender: FDA-Public Use
  Company Number: FR-MILLENNIUM PHARMACEUTICALS, INC.-2011-05835

PATIENT

DRUGS (12)
  1. VELCADE [Suspect]
     Indication: MULTIPLE MYELOMA
     Dosage: 2.6 MG, UNK
     Route: 042
     Dates: start: 20110808, end: 20110819
  2. LASIX [Concomitant]
     Route: 042
  3. CLONAZEPAM [Concomitant]
     Dosage: 2.5 MG, UNK
     Route: 048
     Dates: start: 20110820, end: 20110824
  4. ACTRAPID                           /00030501/ [Concomitant]
     Dosage: UNK
     Route: 058
     Dates: end: 20110826
  5. EXTENCILLINE                       /00000904/ [Concomitant]
     Dosage: UNK
     Route: 030
     Dates: start: 20110609, end: 20110709
  6. ACETAMINOPHEN [Concomitant]
     Indication: BONE PAIN
  7. CLONAZEPAM [Concomitant]
     Dosage: UNK
     Dates: start: 20110609, end: 20110909
  8. MELPHALAN HYDROCHLORIDE [Suspect]
     Indication: MULTIPLE MYELOMA
     Dosage: 18 MG, UNK
     Route: 042
     Dates: start: 20110808, end: 20110819
  9. GLUCOPHAGE [Concomitant]
     Dosage: UNK
     Route: 048
     Dates: start: 20110820, end: 20110824
  10. GLUCOPHAGE [Concomitant]
     Dosage: UNK
     Dates: start: 20110609, end: 20110909
  11. PREDNISONE TAB [Suspect]
     Indication: MULTIPLE MYELOMA
     Dosage: 120 MG, UNK
     Dates: start: 20110808, end: 20110819
  12. POLYETHYLENE GLYCOL [Concomitant]

REACTIONS (3)
  - BACK PAIN [None]
  - INFECTION [None]
  - CHONDROCALCINOSIS [None]
